FAERS Safety Report 11448571 (Version 4)
Quarter: 2016Q1

REPORT INFORMATION
  Report Type: Report from Study
  Country: CN (occurrence: CN)
  Receive Date: 20150902
  Receipt Date: 20160208
  Transmission Date: 20160525
  Serious: Yes (Other)
  Sender: FDA-Public Use
  Company Number: PHHY2015CN093093

PATIENT
  Age: 50 Year
  Sex: Male

DRUGS (90)
  1. PREDNISONE. [Suspect]
     Active Substance: PREDNISONE
     Dosage: 65 MG, QD
     Route: 065
     Dates: start: 20150712, end: 20150713
  2. PREDNISONE. [Suspect]
     Active Substance: PREDNISONE
     Dosage: 55 MG, QD
     Route: 065
     Dates: start: 20150713, end: 20150714
  3. MANNITOL 20% A.N.B [Concomitant]
     Indication: DIURETIC THERAPY
     Dosage: 250 ML, QD
     Route: 042
     Dates: start: 20150704, end: 20150704
  4. DIISOPROPYLAMINE DICHLOROACETATE [Concomitant]
     Indication: PROPHYLAXIS
     Dosage: 80 MG, BID
     Route: 042
     Dates: start: 20150704, end: 20150806
  5. SMECTITE [Concomitant]
     Active Substance: MONTMORILLONITE
     Indication: DIARRHOEA
     Dosage: 3000 MG, TID
     Route: 048
     Dates: start: 20150707, end: 20150710
  6. INSULIN [Concomitant]
     Active Substance: INSULIN NOS
     Dosage: 8 IU, QD
     Route: 065
     Dates: start: 20150711, end: 20150711
  7. NIFEDIPINE. [Concomitant]
     Active Substance: NIFEDIPINE
     Dosage: 10 MG, BID
     Route: 060
     Dates: start: 20150707, end: 20150707
  8. MAGNESIUM ISOGLYCYRRHIZINATE [Concomitant]
     Active Substance: MAGNESIUM ISOGLYCYRRHIZINATE
     Indication: PROPHYLAXIS
     Dosage: 20 ML, QD
     Route: 042
     Dates: start: 20150727, end: 20150806
  9. VALSARTAN. [Concomitant]
     Active Substance: VALSARTAN
     Indication: BLOOD PRESSURE INCREASED
     Dosage: 80 MG, TID
     Route: 048
     Dates: start: 20150731, end: 20150806
  10. MULTI VITAMINS + MINERALS [Concomitant]
     Indication: VITAMIN SUPPLEMENTATION
     Dosage: 1 OT, QD
     Route: 048
     Dates: start: 20150727, end: 20150806
  11. PANTOPRAZOLE SODIUM. [Concomitant]
     Active Substance: PANTOPRAZOLE SODIUM
     Indication: ANTACID THERAPY
     Dosage: 40 MG, BID
     Route: 042
     Dates: start: 20150720, end: 20150806
  12. METOPROLOL SUCCINATE. [Concomitant]
     Active Substance: METOPROLOL SUCCINATE
     Dosage: 47.5 MG, QD
     Route: 048
     Dates: start: 20150725, end: 20150806
  13. ERYTHROPOIETIN [Concomitant]
     Active Substance: ERYTHROPOIETIN
     Indication: ANAEMIA
     Dosage: 10000 IU, BIW
     Route: 042
     Dates: start: 20150705, end: 20150724
  14. BASILIXIMAB [Suspect]
     Active Substance: BASILIXIMAB
     Dosage: 20 MG, QD
     Route: 065
     Dates: start: 20150708, end: 20150708
  15. PREDNISONE. [Suspect]
     Active Substance: PREDNISONE
     Indication: IMMUNOSUPPRESSANT DRUG THERAPY
     Dosage: 85 MG, QD
     Route: 065
     Dates: start: 20150708, end: 20150710
  16. PREDNISONE. [Suspect]
     Active Substance: PREDNISONE
     Dosage: 75 MG, QD
     Dates: start: 20150710, end: 20150712
  17. DEXAMETHASONE SODIUM PHOSPHATE. [Concomitant]
     Active Substance: DEXAMETHASONE SODIUM PHOSPHATE
     Indication: HYPERSENSITIVITY
     Dosage: 10 MG, QD
     Route: 042
     Dates: start: 20150704, end: 20150704
  18. NIFEDIPINE. [Concomitant]
     Active Substance: NIFEDIPINE
     Dosage: 20 MG, QD
     Route: 060
     Dates: start: 20150715, end: 20150715
  19. CEFOPERAZONE SODIUM AND TAZOBACTAM SODIUM [Concomitant]
     Active Substance: CEFOPERAZONE\TAZOBACTAM SODIUM
     Indication: INFECTION
     Dosage: 2500 MG, BID
     Route: 042
     Dates: start: 20150704, end: 20150723
  20. TROPISETRON HYDROCHLORIDE [Concomitant]
     Active Substance: TROPISETRON HYDROCHLORIDE
     Indication: VOMITING
     Dosage: 2 MG, BID
     Route: 042
     Dates: start: 20150704, end: 20150707
  21. ROSUVASTATIN [Concomitant]
     Active Substance: ROSUVASTATIN
     Indication: HYPERLIPIDAEMIA
     Dosage: 10 MG, QN
     Route: 048
     Dates: start: 20150720
  22. ASPIRIN. [Concomitant]
     Active Substance: ASPIRIN
     Indication: COAGULOPATHY
     Dosage: 100 MG, QD
     Route: 048
     Dates: start: 20150720
  23. FOSINOPRIL SODIUM. [Concomitant]
     Active Substance: FOSINOPRIL SODIUM
     Indication: BLOOD PRESSURE INCREASED
     Dosage: 10 MG, QD
     Route: 048
     Dates: start: 20150720
  24. TRIMETAZIDINE [Concomitant]
     Active Substance: TRIMETAZIDINE
     Dosage: 20 MG, TID
     Route: 048
     Dates: start: 20150928
  25. METOPROLOL SUCCINATE. [Concomitant]
     Active Substance: METOPROLOL SUCCINATE
     Indication: BLOOD PRESSURE INCREASED
     Dosage: 23.75 MG, QD
     Route: 048
     Dates: start: 20150720, end: 20150725
  26. TACROLIMUS. [Suspect]
     Active Substance: TACROLIMUS
     Indication: PRODUCT USED FOR UNKNOWN INDICATION
     Dosage: 1.5 MG, QD
     Route: 065
     Dates: start: 20150704
  27. METHYLPREDNISOLONE. [Suspect]
     Active Substance: METHYLPREDNISOLONE
     Indication: PRODUCT USED FOR UNKNOWN INDICATION
     Dosage: 500 MG, QD
     Route: 065
     Dates: start: 20150704, end: 20150704
  28. PREDNISONE. [Suspect]
     Active Substance: PREDNISONE
     Dosage: 20 MG, QD
     Route: 065
     Dates: start: 20150716, end: 20150914
  29. AMBROXOL HYDROCHLORIDE [Concomitant]
     Active Substance: AMBROXOL HYDROCHLORIDE
     Dosage: 30 MG, BID
     Route: 042
     Dates: start: 20150707, end: 20150806
  30. INSULIN [Concomitant]
     Active Substance: INSULIN NOS
     Dosage: 8 IU, QD
     Route: 065
     Dates: start: 20150708, end: 20150708
  31. NIFEDIPINE. [Concomitant]
     Active Substance: NIFEDIPINE
     Dosage: 10 MG, QD
     Route: 060
     Dates: start: 20150703, end: 20150703
  32. NIFEDIPINE. [Concomitant]
     Active Substance: NIFEDIPINE
     Dosage: 10 MG, BID
     Route: 060
     Dates: start: 20150712, end: 20150712
  33. NIFEDIPINE. [Concomitant]
     Active Substance: NIFEDIPINE
     Dosage: 5 MG, QD
     Route: 048
     Dates: start: 20150803, end: 20150803
  34. ISOSORBIDE MONONITRATE. [Concomitant]
     Active Substance: ISOSORBIDE MONONITRATE
     Indication: BLOOD PRESSURE INCREASED
     Dosage: 30 MG, BID
     Route: 042
     Dates: start: 20150720, end: 20150722
  35. MYFORTIC [Suspect]
     Active Substance: MYCOPHENOLATE SODIUM
     Indication: RENAL TRANSPLANT
     Dosage: 1440 MG, QD
     Route: 065
     Dates: start: 20150704, end: 20150707
  36. METHYLPREDNISOLONE. [Suspect]
     Active Substance: METHYLPREDNISOLONE
     Dosage: 70 MG, QD
     Route: 065
     Dates: start: 20150706, end: 20150708
  37. PREDNISONE. [Suspect]
     Active Substance: PREDNISONE
     Dosage: 35 MG, QD
     Route: 065
     Dates: start: 20150715, end: 20150716
  38. CALCITRIOL. [Concomitant]
     Active Substance: CALCITRIOL
     Indication: MINERAL SUPPLEMENTATION
     Dosage: 0.25 UG, QD
     Route: 048
     Dates: start: 20150705
  39. FUROSEMIDE. [Concomitant]
     Active Substance: FUROSEMIDE
     Dosage: 20 MG, QD
     Route: 042
     Dates: start: 20150707
  40. NIFEDIPINE. [Concomitant]
     Active Substance: NIFEDIPINE
     Dosage: 10 MG, BID
     Route: 060
     Dates: start: 20150709, end: 20150709
  41. ALPRAZOLAM. [Concomitant]
     Active Substance: ALPRAZOLAM
     Indication: SLEEP DISORDER
     Dosage: 0.4 MG, QN
     Route: 048
     Dates: start: 20150720, end: 20150720
  42. ALBUMIN [Concomitant]
     Active Substance: ALBUMIN (HUMAN)
     Indication: PRODUCT USED FOR UNKNOWN INDICATION
     Dosage: 50 ML, QD
     Route: 042
     Dates: start: 20150705, end: 20150715
  43. PREDNISONE. [Suspect]
     Active Substance: PREDNISONE
     Dosage: 45 MG, QD
     Route: 065
     Dates: start: 20150715, end: 20150715
  44. MICAFUNGIN SODIUM [Concomitant]
     Active Substance: MICAFUNGIN SODIUM
     Indication: PROPHYLAXIS
     Dosage: 150 MG, QD
     Route: 042
     Dates: start: 20150704, end: 20150724
  45. FUROSEMIDE. [Concomitant]
     Active Substance: FUROSEMIDE
     Dosage: 20 MG, BID
     Route: 042
     Dates: start: 20150705, end: 20150705
  46. AMBROXOL HYDROCHLORIDE [Concomitant]
     Active Substance: AMBROXOL HYDROCHLORIDE
     Indication: SPUTUM ABNORMAL
     Dosage: 90 MG, BID
     Route: 042
     Dates: start: 20150704, end: 20150707
  47. INSULIN [Concomitant]
     Active Substance: INSULIN NOS
     Indication: BLOOD GLUCOSE INCREASED
     Dosage: 45 IU, QD
     Route: 065
     Dates: start: 20150704, end: 20150707
  48. RECOMBINANT HUMAN ERYTHROPOIETIN [Concomitant]
     Active Substance: ERYTHROPOIETIN
     Indication: ANAEMIA
     Dosage: 175 IU, BIW
     Route: 042
     Dates: start: 20150705, end: 20150724
  49. LANSOPRAZOLE. [Concomitant]
     Active Substance: LANSOPRAZOLE
     Indication: ANTACID THERAPY
     Dosage: 30 MG, BID
     Route: 042
     Dates: start: 20150704, end: 20150720
  50. NIFEDIPINE. [Concomitant]
     Active Substance: NIFEDIPINE
     Dosage: 10 MG, QD
     Route: 060
     Dates: start: 20150710, end: 20150710
  51. ALPROSTADIL. [Concomitant]
     Active Substance: ALPROSTADIL
     Indication: RENAL DISORDER
     Dosage: 10 UG, QD
     Route: 042
     Dates: start: 20150704, end: 20150707
  52. ROSUVASTATIN CALCIUM. [Concomitant]
     Active Substance: ROSUVASTATIN CALCIUM
     Indication: LIPIDS INCREASED
     Dosage: 10 MG, QN
     Route: 048
     Dates: start: 20150720
  53. ROSUVASTATIN CALCIUM. [Concomitant]
     Active Substance: ROSUVASTATIN CALCIUM
     Dosage: 0.5 OT, QD
     Route: 048
     Dates: start: 20150928
  54. CALCIUM GLUCONATE. [Concomitant]
     Active Substance: CALCIUM GLUCONATE
     Indication: MINERAL SUPPLEMENTATION
     Dosage: 1000 MG, QD
     Route: 042
     Dates: start: 20150704, end: 20150717
  55. 20 % MEDIUM AND LONG CHAIN LIPID EMULSION [Concomitant]
     Indication: NUTRITIONAL SUPPLEMENTATION
     Dosage: 250 ML, QD
     Route: 042
     Dates: start: 20150705, end: 20150708
  56. BASILIXIMAB [Suspect]
     Active Substance: BASILIXIMAB
     Indication: PRODUCT USED FOR UNKNOWN INDICATION
     Dosage: 20 MG, QD
     Route: 065
     Dates: start: 20150704, end: 20150704
  57. PREDNISONE. [Suspect]
     Active Substance: PREDNISONE
     Dosage: 15 MG, QD
     Route: 065
     Dates: start: 20150915
  58. ALANYL GLUTAMINE [Concomitant]
     Active Substance: ALANYL GLUTAMINE
     Indication: PROPHYLAXIS
     Dosage: 50 ML, QD
     Route: 042
     Dates: start: 20150705, end: 20150713
  59. FUROSEMIDE. [Concomitant]
     Active Substance: FUROSEMIDE
     Dosage: 20 MG, QD
     Route: 042
     Dates: start: 20150709, end: 20150709
  60. METOPROLOL TARTRATE. [Concomitant]
     Active Substance: METOPROLOL TARTRATE
     Indication: BLOOD PRESSURE INCREASED
     Dosage: 25 MG, BID
     Route: 048
     Dates: start: 20150707, end: 20150720
  61. POTASSIUM CHLORIDE. [Concomitant]
     Active Substance: POTASSIUM CHLORIDE
     Dosage: 1000 MG, TID
     Route: 048
     Dates: start: 20150729, end: 20150806
  62. INSULIN [Concomitant]
     Active Substance: INSULIN NOS
     Dosage: 8 IU, QD
     Route: 065
     Dates: start: 20150714, end: 20150714
  63. INSULIN [Concomitant]
     Active Substance: INSULIN NOS
     Dosage: 10 IU, QD
     Route: 048
     Dates: start: 20150731, end: 20150731
  64. CLOPIDOGREL HYDROGEN SULFATE [Concomitant]
     Active Substance: CLOPIDOGREL BISULFATE
     Indication: COAGULOPATHY
     Dosage: 75 MG, QD
     Route: 048
     Dates: start: 20150720
  65. TRIMETAZIDINE [Concomitant]
     Active Substance: TRIMETAZIDINE
     Indication: PROPHYLAXIS
     Dosage: 20 MG, TID
     Route: 048
     Dates: start: 20150720
  66. DIOVAN [Concomitant]
     Active Substance: VALSARTAN
     Indication: BLOOD PRESSURE INCREASED
     Dosage: 80 MG, TID
     Route: 048
     Dates: start: 20150731, end: 20150806
  67. MYFORTIC [Suspect]
     Active Substance: MYCOPHENOLATE SODIUM
     Indication: IMMUNOSUPPRESSION
     Dosage: 1080 MG, QD
     Route: 065
     Dates: start: 20150707, end: 20150913
  68. MYFORTIC [Suspect]
     Active Substance: MYCOPHENOLATE SODIUM
     Dosage: 900 MG, QD
     Route: 065
     Dates: start: 20150914
  69. ESTAZOLAM. [Concomitant]
     Active Substance: ESTAZOLAM
     Indication: SLEEP DISORDER
     Dosage: 1 MG, QN
     Route: 048
     Dates: start: 20150710, end: 20150720
  70. FUDOSTEINE [Concomitant]
     Active Substance: FUDOSTEINE
     Indication: SPUTUM ABNORMAL
     Dosage: 400 MG, TID
     Route: 048
     Dates: start: 20150705, end: 20150806
  71. POTASSIUM CHLORIDE. [Concomitant]
     Active Substance: POTASSIUM CHLORIDE
     Indication: MINERAL SUPPLEMENTATION
     Dosage: 1000 MG, BID
     Route: 048
     Dates: start: 20150707, end: 20150710
  72. POTASSIUM CHLORIDE. [Concomitant]
     Active Substance: POTASSIUM CHLORIDE
     Dosage: 1000 MG, TID
     Route: 048
     Dates: start: 20150713, end: 20150720
  73. CALCEDON//CALCIUM GLUCONATE [Concomitant]
     Indication: MINERAL SUPPLEMENTATION
     Dosage: 1000 MG, QD
     Route: 042
     Dates: start: 20150704
  74. BUDESONIDE. [Concomitant]
     Active Substance: BUDESONIDE
     Indication: SPUTUM ABNORMAL
     Dosage: 2 MG, BID
     Route: 055
     Dates: start: 20150704, end: 20150724
  75. ALLERZIN//PROMETHAZINE HYDROCHLORIDE [Concomitant]
     Indication: HYPERSENSITIVITY
     Dosage: 25 MG, QD
     Route: 030
     Dates: start: 20150704, end: 20150704
  76. CALCIUM CARBONATE. [Concomitant]
     Active Substance: CALCIUM CARBONATE
     Indication: MINERAL SUPPLEMENTATION
     Dosage: 600 MG, QD
     Route: 048
     Dates: start: 20150715
  77. ISOSORBIDE MONONITRATE. [Concomitant]
     Active Substance: ISOSORBIDE MONONITRATE
     Dosage: 25 MG, BID
     Route: 042
     Dates: start: 20150722
  78. SODIUM BICARBONATE. [Concomitant]
     Active Substance: SODIUM BICARBONATE
     Indication: BLOOD URIC ACID INCREASED
     Dosage: 900 MG, TID
     Route: 048
     Dates: start: 20150913
  79. DIAMMONIUM GLYCYRRHIZINATE [Concomitant]
     Active Substance: HERBALS
     Indication: PROPHYLAXIS
     Dosage: 150 MG, TID
     Route: 048
     Dates: start: 20150928
  80. ENOXAPARIN SODIUM. [Concomitant]
     Active Substance: ENOXAPARIN SODIUM
     Indication: COAGULOPATHY
     Dosage: 6000 IU, Q12H
     Route: 042
     Dates: start: 20150720, end: 20150806
  81. METHYLPREDNISOLONE. [Suspect]
     Active Substance: METHYLPREDNISOLONE
     Dosage: 100 MG, QD
     Route: 065
     Dates: start: 20150705, end: 20150706
  82. FUROSEMIDE. [Concomitant]
     Active Substance: FUROSEMIDE
     Indication: POLYURIA
     Dosage: 100 MG, BID
     Route: 042
     Dates: start: 20150704, end: 20150704
  83. TERBUTALINE SULFATE. [Concomitant]
     Active Substance: TERBUTALINE SULFATE
     Indication: SPUTUM ABNORMAL
     Dosage: 5 MG, BID
     Route: 055
     Dates: start: 20150704, end: 20150724
  84. ALLERZIN//PROMETHAZINE HYDROCHLORIDE [Concomitant]
     Dosage: 25 MG, QD
     Route: 030
     Dates: start: 20150708, end: 20150708
  85. IRON SUCROSE [Concomitant]
     Active Substance: IRON SUCROSE
     Indication: ANAEMIA
     Dosage: 200 MG, QD
     Route: 042
     Dates: start: 20150705, end: 20150710
  86. NIFEDIPINE. [Concomitant]
     Active Substance: NIFEDIPINE
     Indication: HYPERTENSION
     Dosage: 10 MG, BID
     Route: 048
     Dates: start: 20150702, end: 20150702
  87. ALPROSTADIL. [Concomitant]
     Active Substance: ALPROSTADIL
     Dosage: 10 UG, QD
     Route: 042
     Dates: start: 20150707, end: 20150806
  88. POLYENE PHOSPHATIDYLCHOLINE [Concomitant]
     Active Substance: PHOSPHOLIPID
     Indication: PROPHYLAXIS
     Dosage: 1 DF, TID
     Route: 048
     Dates: start: 20150928
  89. VASOREL [Concomitant]
     Indication: INFARCTION
     Dosage: 20 MG, TID
     Route: 048
     Dates: start: 20150928
  90. PHOSPHATIDYLCHOLINE [Concomitant]
     Active Substance: LECITHIN
     Indication: PROPHYLAXIS
     Dosage: 1 DF, TID
     Route: 048
     Dates: start: 20150928

REACTIONS (15)
  - Lymphocyte count decreased [Unknown]
  - Platelet count decreased [Unknown]
  - Aspartate aminotransferase increased [Unknown]
  - Protein urine present [Unknown]
  - Thrombocytopenia [Recovering/Resolving]
  - Blood glucose increased [Unknown]
  - Blood urea increased [Unknown]
  - Blood bilirubin increased [Unknown]
  - Nasopharyngitis [Recovering/Resolving]
  - Acute myocardial infarction [Not Recovered/Not Resolved]
  - Haemoglobin decreased [Unknown]
  - Neutrophil count increased [Unknown]
  - Alanine aminotransferase increased [Unknown]
  - White blood cell count decreased [Unknown]
  - Diarrhoea [Recovering/Resolving]

NARRATIVE: CASE EVENT DATE: 20150707
